FAERS Safety Report 4293217-0 (Version None)
Quarter: 2004Q1

REPORT INFORMATION
  Report Type: 
  Country: None (occurrence: None)
  Receive Date: 20040210
  Receipt Date: 20040128
  Transmission Date: 20041129
  Serious: Yes (Hospitalization, Disabling, Other)
  Sender: FDA-Public Use
  Company Number: 2004005982

PATIENT
  Sex: Female
  Weight: 54.4316 kg

DRUGS (2)
  1. NARDIL [Suspect]
     Indication: PANIC DISORDER
     Dosage: 45 MG (TID), ORAL
     Route: 048
  2. DIAZEPAM [Concomitant]

REACTIONS (8)
  - ASTHENIA [None]
  - DEPRESSION [None]
  - DIFFICULTY IN WALKING [None]
  - DRUG INTERACTION [None]
  - INTERVERTEBRAL DISC PROTRUSION [None]
  - JOINT DISLOCATION [None]
  - NECK PAIN [None]
  - WEIGHT DECREASED [None]
